FAERS Safety Report 8784440 (Version 1)
Quarter: 2012Q4

REPORT INFORMATION
  Report Type: 
  Country: JP (occurrence: JP)
  Receive Date: 20120909
  Receipt Date: 20120909
  Transmission Date: 20130627
  Serious: Yes (Other)
  Sender: FDA-Public Use
  Company Number: JP-PFIZER INC-2012218311

PATIENT
  Age: 35 Year
  Sex: Female

DRUGS (1)
  1. SUTENT [Suspect]
     Indication: RENAL CELL CARCINOMA
     Dosage: 50 mg, 1x/day
     Route: 048
     Dates: start: 2011, end: 2011

REACTIONS (9)
  - Ascites [Unknown]
  - Adrenal insufficiency [Unknown]
  - Platelet count decreased [Unknown]
  - Anaemia [Unknown]
  - Hypertension [Unknown]
  - Renal disorder [Unknown]
  - Pleural effusion [Unknown]
  - Hypothyroidism [Unknown]
  - Rash [Unknown]
